FAERS Safety Report 7209625-1 (Version None)
Quarter: 2011Q1

REPORT INFORMATION
  Report Type: 
  Country: None (occurrence: None)
  Receive Date: 20110104
  Receipt Date: 20101230
  Transmission Date: 20110831
  Serious: No
  Sender: FDA-Public Use
  Company Number: US-PFIZER INC-2010182310

PATIENT
  Sex: Female

DRUGS (7)
  1. IMITREX [Concomitant]
     Indication: MIGRAINE
     Dosage: UNK
  2. CHLORPHENAMINE/PSEUDOEPHEDRINE HYDROCHLORIDE [Concomitant]
     Dosage: UNK
  3. PRISTIQ [Suspect]
     Indication: DEPRESSION
     Dosage: 50 MG, 1X/DAY
     Route: 048
     Dates: start: 20080101, end: 20100301
  4. ONGLYZA [Concomitant]
     Indication: TYPE 2 DIABETES MELLITUS
     Dosage: UNK
  5. GLIPIZIDE [Concomitant]
     Indication: TYPE 2 DIABETES MELLITUS
     Dosage: UNK
  6. METFORMIN [Concomitant]
     Indication: TYPE 2 DIABETES MELLITUS
     Dosage: UNK
  7. FLEXERIL [Concomitant]
     Dosage: UNK

REACTIONS (1)
  - IMPAIRED WORK ABILITY [None]
